FAERS Safety Report 6741597-6 (Version None)
Quarter: 2010Q2

REPORT INFORMATION
  Report Type: 
  Country: None (occurrence: None)
  Receive Date: 20100526
  Receipt Date: 20100518
  Transmission Date: 20101027
  Serious: Yes (Hospitalization)
  Sender: FDA-Public Use
  Company Number: FR-ABBOTT-05P-056-0297953-00

PATIENT
  Sex: Female
  Weight: 94 kg

DRUGS (4)
  1. HUMIRA [Suspect]
     Indication: RHEUMATOID ARTHRITIS
     Route: 058
     Dates: start: 20040311, end: 20050321
  2. FELDENE [Concomitant]
     Indication: RHEUMATOID ARTHRITIS
     Dates: start: 20030401
  3. DIANTALVIC [Concomitant]
     Indication: RHEUMATOID ARTHRITIS
     Dates: start: 20030401
  4. COMMERCIAL HUMIRA [Concomitant]
     Indication: RHEUMATOID ARTHRITIS
     Route: 058
     Dates: start: 20031001, end: 20040301

REACTIONS (1)
  - OPTIC NEURITIS [None]
